FAERS Safety Report 4744235-7 (Version None)
Quarter: 2005Q3

REPORT INFORMATION
  Report Type: 
  Country: None (occurrence: None)
  Receive Date: 20050809
  Receipt Date: 20050803
  Transmission Date: 20060218
  Serious: Yes (Disabling)
  Sender: FDA-Public Use
  Company Number: 200510478BNE

PATIENT
  Sex: Male
  Weight: 69.6 kg

DRUGS (5)
  1. CIPROFLOXACIN [Suspect]
     Indication: ORCHITIS
     Dosage: 500 MG, TOTAL DAILY, ORAL
     Route: 048
     Dates: start: 20050713, end: 20050722
  2. ADALAT [Concomitant]
  3. WARFARIN [Concomitant]
  4. AMITRIPTYLINE HCL [Concomitant]
  5. SINEMET [Concomitant]

REACTIONS (1)
  - PARKINSONISM [None]
